FAERS Safety Report 13370222 (Version 1)
Quarter: 2017Q1

REPORT INFORMATION
  Report Type: Spontaneous
  Country: US (occurrence: US)
  Receive Date: 20170324
  Receipt Date: 20170324
  Transmission Date: 20170429
  Serious: Yes (Death, Other)
  Sender: FDA-Public Use
  Company Number: US-PFIZER INC-2016595844

PATIENT
  Age: 86 Year
  Sex: Male
  Weight: 64 kg

DRUGS (1)
  1. REVATIO [Suspect]
     Active Substance: SILDENAFIL CITRATE
     Dosage: 10 MG, 3X/DAY; 20MG HALF TABLET BY MOUTH THREE TIMES A DAY
     Route: 048
     Dates: start: 20161211

REACTIONS (3)
  - Respiratory disorder [Fatal]
  - Lung disorder [Fatal]
  - Pulmonary hypertension [Fatal]
